FAERS Safety Report 16996214 (Version 2)
Quarter: 2019Q4

REPORT INFORMATION
  Report Type: Spontaneous
  Country: JP (occurrence: JP)
  Receive Date: 20191105
  Receipt Date: 20191114
  Transmission Date: 20200122
  Serious: Yes (Hospitalization)
  Sender: FDA-Public Use
  Company Number: JP-ELI_LILLY_AND_COMPANY-JP201910011781

PATIENT
  Age: 70 Year
  Sex: Male
  Weight: 56 kg

DRUGS (3)
  1. ABRAXANE [Concomitant]
     Active Substance: PACLITAXEL
     Indication: GASTRIC CANCER STAGE IV
     Dosage: 130 MG
     Route: 041
     Dates: start: 20190819
  2. NEXIUM I.V. [Concomitant]
     Active Substance: ESOMEPRAZOLE SODIUM
     Indication: GASTROOESOPHAGEAL REFLUX DISEASE
     Dosage: 20 MG, DAILY
     Route: 048
     Dates: start: 20181205, end: 20190925
  3. CYRAMZA [Suspect]
     Active Substance: RAMUCIRUMAB
     Indication: GASTRIC CANCER STAGE IV
     Dosage: 450 MG
     Route: 041
     Dates: start: 20190819, end: 20190909

REACTIONS (3)
  - Gastric perforation [Not Recovered/Not Resolved]
  - Neutrophil count decreased [Unknown]
  - Peritonitis [Unknown]

NARRATIVE: CASE EVENT DATE: 20190828
